FAERS Safety Report 21291739 (Version 7)
Quarter: 2024Q2

REPORT INFORMATION
  Report Type: Report from Study
  Country: US (occurrence: US)
  Receive Date: 20220903
  Receipt Date: 20240507
  Transmission Date: 20240716
  Serious: Yes (Hospitalization, Other)
  Sender: FDA-Public Use
  Company Number: US-ABBVIE-22K-163-4526641-00

PATIENT
  Age: 66 Year
  Sex: Female
  Weight: 78.925 kg

DRUGS (15)
  1. HUMIRA [Suspect]
     Active Substance: ADALIMUMAB
     Indication: Rheumatoid arthritis
     Dosage: FORM STRENGTH: 40 MG
     Route: 058
     Dates: start: 201207
  2. HUMIRA [Suspect]
     Active Substance: ADALIMUMAB
     Route: 058
  3. ELIQUIS [Concomitant]
     Active Substance: APIXABAN
     Indication: Atrial fibrillation
  4. AMLODIPINE [Concomitant]
     Active Substance: AMLODIPINE BESYLATE
     Indication: Hypertension
  5. METHOTREXATE [Concomitant]
     Active Substance: METHOTREXATE
     Indication: Rheumatoid arthritis
  6. LOSARTAN POTASSIUM [Concomitant]
     Active Substance: LOSARTAN POTASSIUM
     Indication: Blood pressure measurement
  7. METOPROLOL [Concomitant]
     Active Substance: METOPROLOL
     Indication: Atrial fibrillation
  8. MODERNA COVID-19 VACCINE [Concomitant]
     Active Substance: ELASOMERAN
     Indication: COVID-19 immunisation
     Dosage: TIME INTERVAL: 1 TOTAL: 1ST DOSE
     Route: 030
     Dates: start: 20210226, end: 20210226
  9. MODERNA COVID-19 VACCINE [Concomitant]
     Active Substance: ELASOMERAN
     Indication: COVID-19 immunisation
     Dosage: TIME INTERVAL: 1 TOTAL: 2ND DOSE
     Route: 030
     Dates: start: 20210326, end: 20210326
  10. MODERNA COVID-19 VACCINE [Concomitant]
     Active Substance: ELASOMERAN
     Indication: COVID-19 immunisation
     Dosage: TIME INTERVAL: 1 TOTAL: 1ST BOOSTER DOSE
     Route: 030
     Dates: start: 20210926, end: 20210926
  11. MODERNA COVID-19 VACCINE [Concomitant]
     Active Substance: ELASOMERAN
     Indication: COVID-19 immunisation
     Dosage: TIME INTERVAL: 1 TOTAL: 2ND BOOSTER
     Route: 030
     Dates: start: 20220602, end: 20220602
  12. Covid 19 Vaccine [Concomitant]
     Indication: COVID-19 immunisation
     Dosage: MODERNA
     Route: 030
     Dates: start: 20220602, end: 20220602
  13. Covid 19 Vaccine [Concomitant]
     Indication: COVID-19 immunisation
     Dosage: MODERNA
     Route: 030
     Dates: start: 20210226, end: 20210226
  14. Covid 19 Vaccine [Concomitant]
     Indication: COVID-19 immunisation
     Dosage: MODERNA
     Route: 030
     Dates: start: 20210326, end: 20210326
  15. Covid 19 Vaccine [Concomitant]
     Indication: COVID-19 immunisation
     Dosage: MODERNA
     Route: 030
     Dates: start: 20210926, end: 20210926

REACTIONS (14)
  - Haemorrhage [Recovering/Resolving]
  - Constipation [Recovered/Resolved]
  - Thrombosis [Recovering/Resolving]
  - Diarrhoea haemorrhagic [Recovered/Resolved]
  - Gastric haemorrhage [Recovered/Resolved]
  - Diverticulum intestinal [Recovering/Resolving]
  - Adverse food reaction [Recovered/Resolved]
  - Immunodeficiency [Not Recovered/Not Resolved]
  - Adverse food reaction [Unknown]
  - Dizziness [Recovered/Resolved]
  - Intestinal polyp [Not Recovered/Not Resolved]
  - Diarrhoea haemorrhagic [Recovered/Resolved]
  - Pain in extremity [Not Recovered/Not Resolved]
  - Paraesthesia [Recovered/Resolved]

NARRATIVE: CASE EVENT DATE: 20120701
